FAERS Safety Report 10876540 (Version 1)
Quarter: 2015Q1

REPORT INFORMATION
  Report Type: Spontaneous
  Country: US (occurrence: US)
  Receive Date: 20150301
  Receipt Date: 20150301
  Transmission Date: 20150721
  Serious: No
  Sender: FDA-Public Use
  Company Number: US-BIOGENIDEC-2015BI014674

PATIENT
  Age: 37 Year
  Sex: Female

DRUGS (1)
  1. TECFIDERA [Suspect]
     Active Substance: DIMETHYL FUMARATE
     Indication: MULTIPLE SCLEROSIS
     Dates: start: 20140901

REACTIONS (6)
  - Arthralgia [Not Recovered/Not Resolved]
  - Feeling hot [Recovered/Resolved]
  - Pain [Not Recovered/Not Resolved]
  - Flushing [Recovered/Resolved]
  - Back pain [Not Recovered/Not Resolved]
  - Erythema [Recovered/Resolved]

NARRATIVE: CASE EVENT DATE: 20140901
